FAERS Safety Report 20209735 (Version 1)
Quarter: 2021Q4

REPORT INFORMATION
  Report Type: Spontaneous
  Country: FR (occurrence: FR)
  Receive Date: 20211221
  Receipt Date: 20211221
  Transmission Date: 20220303
  Serious: Yes (Life-Threatening, Hospitalization, Other)
  Sender: FDA-Public Use
  Company Number: FR-AFSSAPS-MP20211687

PATIENT
  Age: 6 Year
  Sex: Male
  Weight: 25.9 kg

DRUGS (8)
  1. LEVETIRACETAM [Suspect]
     Active Substance: LEVETIRACETAM
     Indication: Petit mal epilepsy
     Dosage: 1000 MILLIGRAM, ONCE A DAY
     Route: 041
     Dates: start: 202003
  2. CHLORPROMAZINE [Suspect]
     Active Substance: CHLORPROMAZINE
     Indication: Behaviour disorder
     Dosage: 12 MILLIGRAM, ONCE A DAY
     Route: 041
  3. NALBUPHINE [Suspect]
     Active Substance: NALBUPHINE
     Indication: Pain
     Dosage: 1 MILLION PER KILOGRAM, ONCE A DAY (+ INTERDOSES)
     Route: 041
     Dates: start: 202003
  4. POLARAMINE [Suspect]
     Active Substance: DEXCHLORPHENIRAMINE MALEATE
     Indication: Product used for unknown indication
     Dosage: 2 DOSAGE FORM, ONCE A DAY (2 AMPOULES PER DAY)
     Route: 041
     Dates: start: 2019
  5. ACETAMINOPHEN [Concomitant]
     Active Substance: ACETAMINOPHEN
     Indication: Pain
     Dosage: 500 MILLIGRAM
     Route: 041
  6. HYDROCORTISONE [Concomitant]
     Active Substance: HYDROCORTISONE
     Indication: Cortisol decreased
     Dosage: 15 MILLIGRAM, ONCE A DAY
     Route: 041
     Dates: start: 201805
  7. OMEPRAZOLE [Concomitant]
     Active Substance: OMEPRAZOLE
     Indication: Product used for unknown indication
     Dosage: 40 MILLIGRAM, ONCE A DAY
     Route: 041
  8. NITROUS OXIDE [Concomitant]
     Active Substance: NITROUS OXIDE
     Indication: Pain
     Dosage: UNK
     Route: 055

REACTIONS (1)
  - Urinary retention [Not Recovered/Not Resolved]

NARRATIVE: CASE EVENT DATE: 20201201
